FAERS Safety Report 21661584 (Version 1)
Quarter: 2022Q4

REPORT INFORMATION
  Report Type: Spontaneous
  Country: IT (occurrence: IT)
  Receive Date: 20221130
  Receipt Date: 20221130
  Transmission Date: 20230113
  Serious: Yes (Hospitalization, Other)
  Sender: FDA-Public Use
  Company Number: None

PATIENT
  Sex: Female
  Weight: 89 kg

DRUGS (1)
  1. METHOTREXATE [Suspect]
     Active Substance: METHOTREXATE
     Indication: Ectopic pregnancy
     Dosage: 92.5 MG FL INTRAMUSCULAR SINGLE DOSE, DOSE:100, IN PREFILLED SYRINGE
     Dates: start: 20220416, end: 20220416

REACTIONS (7)
  - Conjunctival hyperaemia [Recovering/Resolving]
  - Acute generalised exanthematous pustulosis [Recovering/Resolving]
  - Aphthous ulcer [Recovering/Resolving]
  - Oropharyngeal pain [Recovering/Resolving]
  - Mucosal inflammation [Recovering/Resolving]
  - Eyelid oedema [Recovering/Resolving]
  - Mucosal hyperaemia [Recovering/Resolving]

NARRATIVE: CASE EVENT DATE: 20220424
